FAERS Safety Report 9880897 (Version 1)
Quarter: 2014Q1

REPORT INFORMATION
  Report Type: Spontaneous
  Country: AT (occurrence: AT)
  Receive Date: 20140207
  Receipt Date: 20140207
  Transmission Date: 20141002
  Serious: Yes (Other)
  Sender: FDA-Public Use
  Company Number: AT-009507513-1401AUT014629

PATIENT
  Sex: 0

DRUGS (1)
  1. ESMERON [Suspect]
     Dosage: UNK
     Dates: start: 201401, end: 201401

REACTIONS (2)
  - Intensive care [Recovered/Resolved]
  - Anaphylactic reaction [Recovered/Resolved]
